FAERS Safety Report 14692930 (Version 1)
Quarter: 2018Q1

REPORT INFORMATION
  Report Type: Report from Study
  Country: US (occurrence: US)
  Receive Date: 20180329
  Receipt Date: 20180329
  Transmission Date: 20180509
  Serious: Yes (Hospitalization)
  Sender: FDA-Public Use
  Company Number: PHEH2018US010711

PATIENT
  Sex: Female
  Weight: 79.8 kg

DRUGS (3)
  1. OTEZLA [Suspect]
     Active Substance: APREMILAST
     Indication: PRODUCT USED FOR UNKNOWN INDICATION
     Route: 065
  2. COSENTYX [Suspect]
     Active Substance: SECUKINUMAB
     Indication: PSORIASIS
     Dosage: 150 MG, QMO
     Route: 058
  3. COSENTYX [Suspect]
     Active Substance: SECUKINUMAB
     Dosage: 300 MG, UNK
     Route: 058

REACTIONS (9)
  - Cluster headache [Unknown]
  - Pallor [Unknown]
  - Pneumonia [Unknown]
  - Malaise [Unknown]
  - Cold sweat [Unknown]
  - Fatigue [Unknown]
  - Dyspnoea [Unknown]
  - Asthma [Unknown]
  - Nausea [Unknown]
